FAERS Safety Report 18195230 (Version 1)
Quarter: 2020Q3

REPORT INFORMATION
  Report Type: Spontaneous
  Country: CA (occurrence: CA)
  Receive Date: 20200825
  Receipt Date: 20200825
  Transmission Date: 20201103
  Serious: Yes (Hospitalization)
  Sender: FDA-Public Use
  Company Number: CA-ASTRAZENECA-2020SF06560

PATIENT
  Age: 52 Year
  Sex: Female

DRUGS (25)
  1. 3TC [Concomitant]
     Active Substance: LAMIVUDINE
  2. IMODIUM [Concomitant]
     Active Substance: LOPERAMIDE HYDROCHLORIDE
  3. KALETRA [Concomitant]
     Active Substance: LOPINAVIR\RITONAVIR
  4. NYSTATIN. [Concomitant]
     Active Substance: NYSTATIN
  5. DIAZEPAM. [Suspect]
     Active Substance: DIAZEPAM
     Indication: DEPRESSION
     Dosage: 1500.0MG UNKNOWN
     Route: 048
  6. TRAZODONE [Suspect]
     Active Substance: TRAZODONE HYDROCHLORIDE
     Indication: DEPRESSION
     Dosage: 50.0MG UNKNOWN
     Route: 048
  7. ACETAMINOPHEN. [Suspect]
     Active Substance: ACETAMINOPHEN
     Indication: PAIN IN EXTREMITY
     Dosage: 650.0MG UNKNOWN
     Route: 065
  8. OLANZAPINE. [Suspect]
     Active Substance: OLANZAPINE
     Indication: PSYCHOTIC DISORDER
     Route: 048
  9. LACTULOSE SYRUP [Concomitant]
     Active Substance: LACTULOSE
  10. SERTRALINE [Concomitant]
     Active Substance: SERTRALINE HYDROCHLORIDE
  11. QUETIAPINE. [Suspect]
     Active Substance: QUETIAPINE
     Indication: PSYCHOTIC DISORDER
     Route: 048
  12. DIAZEPAM. [Suspect]
     Active Substance: DIAZEPAM
     Indication: DEPRESSION
     Dosage: 250.0MG UNKNOWN
     Route: 048
  13. PROCYCLIDINE HCL [Suspect]
     Active Substance: PROCYCLIDINE HYDROCHLORIDE
     Indication: PROPHYLAXIS
     Route: 048
  14. TEGRETOL [Suspect]
     Active Substance: CARBAMAZEPINE
     Indication: HYPOMANIA
     Route: 048
  15. BISACODYL. [Concomitant]
     Active Substance: BISACODYL
  16. CHLORAL HYDRATE [Concomitant]
     Active Substance: CHLORAL HYDRATE
  17. LITHIUM. [Concomitant]
     Active Substance: LITHIUM
  18. T?20 [Concomitant]
     Active Substance: ENFUVIRTIDE
  19. DIAZEPAM. [Suspect]
     Active Substance: DIAZEPAM
     Indication: DEPRESSION
     Dosage: 2750.0MG UNKNOWN
     Route: 065
  20. PROCYCLIDINE HCL [Suspect]
     Active Substance: PROCYCLIDINE HYDROCHLORIDE
     Indication: MUSCULOSKELETAL STIFFNESS
     Route: 048
  21. RISPERIDONE. [Suspect]
     Active Substance: RISPERIDONE
     Indication: PSYCHOTIC DISORDER
     Route: 048
  22. BETACAROTENE/DALPHATOCO PHEROL/LYCOPENE/POLY PODIUM/LEUCOTOMOS/X AN... [Concomitant]
  23. CLONAZEPAM. [Suspect]
     Active Substance: CLONAZEPAM
     Indication: HYPOMANIA
     Dosage: 3.0MG UNKNOWN
     Route: 048
  24. OLANZAPINE. [Suspect]
     Active Substance: OLANZAPINE
     Indication: PSYCHOTIC DISORDER
     Route: 048
  25. CALCIUM CARBONATE. [Concomitant]
     Active Substance: CALCIUM CARBONATE

REACTIONS (12)
  - Blood bilirubin increased [Unknown]
  - Pneumonia [Unknown]
  - Condition aggravated [Unknown]
  - Jaundice cholestatic [Unknown]
  - Cholelithiasis [Unknown]
  - Hepatic enzyme increased [Unknown]
  - Schizophrenia [Unknown]
  - Vomiting [Unknown]
  - Hepatotoxicity [Unknown]
  - Hypomania [Unknown]
  - Psychotic disorder [Unknown]
  - Nausea [Unknown]
